FAERS Safety Report 4610337-9 (Version None)
Quarter: 2005Q1

REPORT INFORMATION
  Report Type: 
  Country: None (occurrence: None)
  Receive Date: 20050314
  Receipt Date: 20050303
  Transmission Date: 20050727
  Serious: Yes (Hospitalization)
  Sender: FDA-Public Use
  Company Number: 200510358BWH

PATIENT
  Age: 62 Year
  Sex: Male

DRUGS (2)
  1. CIPRO XR [Suspect]
     Indication: ASPIRATION BIOPSY
     Dosage: 1000 MG, QD, ORAL
     Route: 048
     Dates: start: 20041209, end: 20041210
  2. CIPRO XR [Suspect]
     Indication: PROSTATIC DISORDER
     Dosage: 1000 MG, QD, ORAL
     Route: 048
     Dates: start: 20041209, end: 20041210

REACTIONS (2)
  - POST PROCEDURAL COMPLICATION [None]
  - UROSEPSIS [None]
